FAERS Safety Report 17169916 (Version 1)
Quarter: 2019Q4

REPORT INFORMATION
  Report Type: Report from Study
  Country: AU (occurrence: AU)
  Receive Date: 20191218
  Receipt Date: 20191218
  Transmission Date: 20200122
  Serious: Yes (Other)
  Sender: FDA-Public Use
  Company Number: AU-TOLMAR, INC.-19AU000191

PATIENT
  Age: 74 Year
  Sex: Male

DRUGS (2)
  1. VITAMIN K2 +VITAMIN D3 +CALCIUM [Suspect]
     Active Substance: CALCIUM\MENAQUINONE 6\VITAMIN D
     Indication: PRODUCT USED FOR UNKNOWN INDICATION
     Dosage: UNK, TID
     Route: 065
  2. ELIGARD [Suspect]
     Active Substance: LEUPROLIDE ACETATE
     Indication: PROSTATE CANCER
     Dosage: 22.5 MILLIGRAM, Q3 MONTHS
     Route: 058
     Dates: start: 20190913

REACTIONS (3)
  - Dizziness [Recovered/Resolved]
  - Hypoacusis [Recovered/Resolved]
  - Headache [Recovered/Resolved]

NARRATIVE: CASE EVENT DATE: 201909
